FAERS Safety Report 4447176-8 (Version None)
Quarter: 2004Q3

REPORT INFORMATION
  Report Type: 
  Country: None (occurrence: None)
  Receive Date: 20040908
  Receipt Date: 20040908
  Transmission Date: 20050211
  Serious: Yes (Other)
  Sender: FDA-Public Use
  Company Number: None

PATIENT
  Age: 91 Year
  Sex: Female
  Weight: 67.1324 kg

DRUGS (1)
  1. DIGITEK 0.125MG [Suspect]
     Indication: HEART RATE IRREGULAR
     Dosage: 0.125MG 1 TAB DAILY

REACTIONS (3)
  - COUGH [None]
  - DYSPNOEA [None]
  - NAUSEA [None]
